FAERS Safety Report 6788841-7 (Version None)
Quarter: 2010Q2

REPORT INFORMATION
  Report Type: 
  Country: None (occurrence: None)
  Receive Date: 20100623
  Receipt Date: 20080623
  Transmission Date: 20101027
  Serious: No
  Sender: FDA-Public Use
  Company Number: US-PFIZER INC-2008039935

PATIENT
  Sex: Female

DRUGS (2)
  1. XALATAN [Suspect]
     Indication: OPEN ANGLE GLAUCOMA
     Route: 061
     Dates: start: 20080401
  2. VISINE EYE DROPS [Concomitant]

REACTIONS (1)
  - EYE DISORDER [None]
